FAERS Safety Report 23568729 (Version 1)
Quarter: 2024Q1

REPORT INFORMATION
  Report Type: Report from Study
  Country: NL (occurrence: NL)
  Receive Date: 20240227
  Receipt Date: 20240227
  Transmission Date: 20240410
  Serious: Yes (Death)
  Sender: FDA-Public Use
  Company Number: NL-ABBVIE-5652891

PATIENT
  Age: 82 Year
  Sex: Male

DRUGS (9)
  1. CARBIDOPA\LEVODOPA [Suspect]
     Active Substance: CARBIDOPA\LEVODOPA
     Indication: Parkinson^s disease
     Dosage: MD: 15.0ML, CD: 4.8ML/H, ED: 5.00ML?REMAINS AT 16 HOURS
     Route: 050
     Dates: start: 20231114, end: 20231122
  2. CARBIDOPA\LEVODOPA [Suspect]
     Active Substance: CARBIDOPA\LEVODOPA
     Route: 050
     Dates: start: 20171204
  3. CARBIDOPA\LEVODOPA [Suspect]
     Active Substance: CARBIDOPA\LEVODOPA
     Dosage: MD: 15.0ML, CD: 4.8ML/H, ED: 5.00ML?REMAINS AT 16 HOURS
     Route: 050
     Dates: start: 20240131
  4. CARBIDOPA\LEVODOPA [Suspect]
     Active Substance: CARBIDOPA\LEVODOPA
     Dosage: MD: 15.0ML, CD: 4.8ML/H, ED: 5.00ML?REMAINS AT 16 HOURS
     Route: 050
     Dates: start: 20231122, end: 20240131
  5. CARBIDOPA\LEVODOPA [Suspect]
     Active Substance: CARBIDOPA\LEVODOPA
     Dosage: MD: 15.0ML, CD: 4.5ML/H, ED: 5.00ML?REMAINS AT 16 HOURS
     Route: 050
     Dates: start: 20231107, end: 20231114
  6. ENTACAPONE [Concomitant]
     Active Substance: ENTACAPONE
     Indication: Product used for unknown indication
  7. POLYETHYLENE GLYCOLS [Concomitant]
     Active Substance: POLYETHYLENE GLYCOLS
     Indication: Abnormal faeces
     Dosage: SACHETS?AS REQUIRED
  8. CARBIDOPA AND LEVODOPA [Concomitant]
     Active Substance: CARBIDOPA\LEVODOPA
     Indication: Parkinson^s disease
     Dosage: TIME INTERVAL: 0.33333333 DAYS
  9. LEVODOPA [Concomitant]
     Active Substance: LEVODOPA
     Indication: Parkinson^s disease
     Dosage: ENZYME INHIBITOR

REACTIONS (2)
  - Euthanasia [Fatal]
  - Pain [Unknown]

NARRATIVE: CASE EVENT DATE: 20240216
